FAERS Safety Report 23089662 (Version 1)
Quarter: 2023Q4

REPORT INFORMATION
  Report Type: Spontaneous
  Country: GB (occurrence: GB)
  Receive Date: 20231020
  Receipt Date: 20231020
  Transmission Date: 20240110
  Serious: Yes (Other)
  Sender: FDA-Public Use
  Company Number: GB-MYLANLABS-2023M1110402

PATIENT

DRUGS (1)
  1. CLOZARIL [Suspect]
     Active Substance: CLOZAPINE
     Indication: Schizophrenia
     Dosage: UNK
     Route: 065

REACTIONS (5)
  - Lower respiratory tract infection [Unknown]
  - Small intestinal obstruction [Unknown]
  - Ileus paralytic [Unknown]
  - Tardive dyskinesia [Unknown]
  - Mental disorder [Unknown]

NARRATIVE: CASE EVENT DATE: 20200101
